FAERS Safety Report 10181195 (Version 2)
Quarter: 2014Q2

REPORT INFORMATION
  Report Type: Spontaneous
  Country: US (occurrence: US)
  Receive Date: 20140519
  Receipt Date: 20140519
  Transmission Date: 20141212
  Serious: No
  Sender: FDA-Public Use
  Company Number: US-AMGEN INC.-USASP2014015741

PATIENT
  Age: 82 Year
  Sex: Female
  Weight: 46.26 kg

DRUGS (6)
  1. PROLIA [Suspect]
     Indication: OSTEOPOROSIS POSTMENOPAUSAL
     Dosage: 60 MG, UNK
     Route: 058
     Dates: start: 20131015
  2. LEVOTHYROXINE SODIUM [Concomitant]
     Indication: HYPOTHYROIDISM
     Dosage: 75 MG, QD
     Route: 048
  3. ATENOLOL [Concomitant]
     Dosage: 25 MG, QD
     Route: 048
  4. LASIX                              /00032601/ [Concomitant]
     Dosage: 20 MG, QOD
     Route: 048
  5. MVI                                /01825701/ [Concomitant]
     Dosage: UNK UNK, QD
     Route: 048
  6. CALCIUM CARBONATE AND VITAMIN D [Concomitant]
     Indication: OSTEOPOROSIS
     Dosage: 1 TAB, QD

REACTIONS (3)
  - Artificial crown procedure [Unknown]
  - Ear pain [Unknown]
  - Temporomandibular joint syndrome [Recovering/Resolving]
